FAERS Safety Report 4993441-5 (Version None)
Quarter: 2006Q2

REPORT INFORMATION
  Report Type: 
  Country: None (occurrence: None)
  Receive Date: 20060503
  Receipt Date: 20060503
  Transmission Date: 20061013
  Serious: Yes (Hospitalization)
  Sender: FDA-Public Use
  Company Number: None

PATIENT
  Age: 72 Year
  Sex: Male

DRUGS (2)
  1. DOCETAXEL [Suspect]
     Indication: NON-SMALL CELL LUNG CANCER
     Dosage: 75MG/M2
     Dates: start: 20060220
  2. CARBOPLATIN [Suspect]
     Dosage: AUC 6
     Dates: start: 20060220

REACTIONS (10)
  - ATRIAL FLUTTER [None]
  - DEHYDRATION [None]
  - HYPOTENSION [None]
  - INTERNATIONAL NORMALISED RATIO INCREASED [None]
  - NAUSEA [None]
  - NEUTROPENIA [None]
  - NON-SMALL CELL LUNG CANCER [None]
  - ORAL INTAKE REDUCED [None]
  - STOMATITIS [None]
  - VOMITING [None]
